FAERS Safety Report 10430588 (Version 2)
Quarter: 2014Q3

REPORT INFORMATION
  Report Type: Report from Study
  Country: US (occurrence: US)
  Receive Date: 20140904
  Receipt Date: 20140904
  Transmission Date: 20150326
  Serious: Yes (Hospitalization, Other)
  Sender: FDA-Public Use
  Company Number: US-ASTRAZENECA-2014SE56786

PATIENT
  Age: 52 Year
  Sex: Male
  Weight: 78.5 kg

DRUGS (12)
  1. PLAVIX [Concomitant]
     Active Substance: CLOPIDOGREL BISULFATE
     Indication: CARDIAC DISORDER
     Route: 048
  2. KEPPRA [Concomitant]
     Active Substance: LEVETIRACETAM
     Route: 048
  3. TRAMADOL [Concomitant]
     Active Substance: TRAMADOL
  4. ONE-A-DAY MENS [Concomitant]
  5. AMLODIPINE [Concomitant]
     Active Substance: AMLODIPINE BESYLATE
     Indication: CARDIAC DISORDER
     Route: 048
  6. PRIMIDONE. [Concomitant]
     Active Substance: PRIMIDONE
     Route: 048
  7. NITROGLYCERIN. [Concomitant]
     Active Substance: NITROGLYCERIN
     Dosage: 1 Q 5 MIN AS NEEDED WITH CHEST PAIN UP TO 3 DOSES IN 15 MINUTES
     Route: 060
  8. CRESTOR [Suspect]
     Active Substance: ROSUVASTATIN CALCIUM
     Indication: BLOOD CHOLESTEROL ABNORMAL
     Route: 048
  9. ASA [Concomitant]
     Active Substance: ASPIRIN
     Indication: CARDIAC DISORDER
     Route: 048
  10. ATENOLOL. [Suspect]
     Active Substance: ATENOLOL
     Indication: CARDIAC DISORDER
     Route: 048
  11. CRESTOR [Suspect]
     Active Substance: ROSUVASTATIN CALCIUM
     Indication: BLOOD CHOLESTEROL ABNORMAL
     Route: 048
     Dates: start: 2012
  12. LISINOPRIL. [Suspect]
     Active Substance: LISINOPRIL
     Indication: CARDIAC DISORDER
     Route: 048

REACTIONS (44)
  - Chest discomfort [Unknown]
  - Visual acuity reduced [Unknown]
  - Dizziness [Unknown]
  - Bradykinesia [Unknown]
  - Gait disturbance [Unknown]
  - Orthopnoea [Unknown]
  - Cough [Unknown]
  - Chills [Unknown]
  - Sinus disorder [Unknown]
  - Hypertension [Unknown]
  - Parasomnia [Unknown]
  - Myoclonus [Unknown]
  - Epistaxis [Unknown]
  - Asthenia [Unknown]
  - Gingival bleeding [Unknown]
  - Musculoskeletal pain [Unknown]
  - Insomnia [Unknown]
  - Dyspepsia [Unknown]
  - Vomiting [Unknown]
  - Depression [Unknown]
  - Nocturia [Unknown]
  - Poor personal hygiene [Unknown]
  - Hypoaesthesia [Unknown]
  - Myocardial infarction [Unknown]
  - Fatigue [Unknown]
  - Sleep talking [Unknown]
  - Diarrhoea [Unknown]
  - Back pain [Unknown]
  - Temperature intolerance [Unknown]
  - Vertigo [Unknown]
  - Abdominal pain [Unknown]
  - Posture abnormal [Unknown]
  - Peripheral coldness [Unknown]
  - Periarthritis [Unknown]
  - Apnoea [Unknown]
  - Snoring [Unknown]
  - Balance disorder [Unknown]
  - Dyspnoea [Unknown]
  - Tremor [Unknown]
  - Choking [Unknown]
  - Chest pain [Unknown]
  - Oedema [Unknown]
  - Hyperhidrosis [Unknown]
  - Hypokinesia [Unknown]

NARRATIVE: CASE EVENT DATE: 20140520
